FAERS Safety Report 19771155 (Version 1)
Quarter: 2021Q3

REPORT INFORMATION
  Report Type: Spontaneous
  Country: GB (occurrence: GB)
  Receive Date: 20210901
  Receipt Date: 20210901
  Transmission Date: 20211014
  Serious: Yes (Disabling)
  Sender: FDA-Public Use
  Company Number: GB-ACCORD-236842

PATIENT
  Age: 63 Year

DRUGS (5)
  1. BICALUTAMIDE. [Suspect]
     Active Substance: BICALUTAMIDE
     Indication: PRODUCT USED FOR UNKNOWN INDICATION
  2. LANSOPRAZOLE. [Concomitant]
     Active Substance: LANSOPRAZOLE
  3. TRIPTORELIN/TRIPTORELIN ACETATE/TRIPTORELIN EMBONATE [Concomitant]
     Active Substance: TRIPTORELIN
  4. BISOPROLOL [Concomitant]
     Active Substance: BISOPROLOL
  5. PERINDOPRIL [Concomitant]
     Active Substance: PERINDOPRIL

REACTIONS (7)
  - Insomnia [Unknown]
  - Weight decreased [Unknown]
  - Fatigue [Unknown]
  - Muscle atrophy [Unknown]
  - Abdominal pain [Unknown]
  - Constipation [Unknown]
  - Abnormal dreams [Unknown]
